FAERS Safety Report 9200416 (Version 2)
Quarter: 2013Q2

REPORT INFORMATION
  Report Type: Spontaneous
  Country: US (occurrence: US)
  Receive Date: 20130329
  Receipt Date: 20130507
  Transmission Date: 20140414
  Serious: Yes (Hospitalization)
  Sender: FDA-Public Use
  Company Number: CHPA2013US005408

PATIENT
  Age: 81 Year
  Sex: Female

DRUGS (1)
  1. VOLTAREN GEL [Suspect]
     Indication: PAIN
     Dosage: 2 G, QD-TID
     Route: 061
     Dates: start: 201302

REACTIONS (7)
  - Gastric disorder [Recovering/Resolving]
  - Bone disorder [Recovering/Resolving]
  - Pain [Unknown]
  - Drug ineffective for unapproved indication [Unknown]
  - Therapeutic response unexpected [Unknown]
  - Drug administered at inappropriate site [Unknown]
  - Wrong technique in drug usage process [Unknown]
